FAERS Safety Report 5194357-4 (Version None)
Quarter: 2006Q4

REPORT INFORMATION
  Report Type: 
  Country: None (occurrence: None)
  Receive Date: 20061228
  Receipt Date: 20061110
  Transmission Date: 20070319
  Serious: Yes (Other)
  Sender: FDA-Public Use
  Company Number: NL-ABBOTT-06P-114-0350014-00

PATIENT
  Sex: Female

DRUGS (2)
  1. DEPAKENE [Suspect]
     Indication: EPILEPSY
     Route: 048
     Dates: start: 19961220, end: 20060926
  2. LEVOCETIRIZINE DIHYDROCHLORIDE [Concomitant]
     Indication: DRUG USE FOR UNKNOWN INDICATION
     Route: 048
     Dates: start: 20020730

REACTIONS (2)
  - AMENORRHOEA [None]
  - BRAIN NEOPLASM BENIGN [None]
